FAERS Safety Report 18034640 (Version 5)
Quarter: 2021Q3

REPORT INFORMATION
  Report Type: Report from Study
  Country: US (occurrence: US)
  Receive Date: 20200716
  Receipt Date: 20210707
  Transmission Date: 20211014
  Serious: No
  Sender: FDA-Public Use
  Company Number: NVSC2020US199415

PATIENT
  Age: 77 Year
  Sex: Male

DRUGS (2)
  1. ENTRESTO [Suspect]
     Active Substance: SACUBITRIL\VALSARTAN
     Indication: CARDIAC FAILURE
     Dosage: UNK, BID (97/103 MG)
     Route: 048
     Dates: start: 20200629
  2. ENTRESTO [Suspect]
     Active Substance: SACUBITRIL\VALSARTAN
     Indication: CARDIAC FAILURE
     Dosage: 100 (49/51) MG, BID
     Route: 048
     Dates: start: 20200629

REACTIONS (9)
  - Rash pruritic [Unknown]
  - Abdominal discomfort [Unknown]
  - Diarrhoea [Unknown]
  - Dizziness [Recovered/Resolved]
  - Pruritus [Not Recovered/Not Resolved]
  - Weight decreased [Recovering/Resolving]
  - Pruritus [Recovered/Resolved with Sequelae]
  - Dizziness [Recovered/Resolved]
  - Energy increased [Recovering/Resolving]

NARRATIVE: CASE EVENT DATE: 20200628
